FAERS Safety Report 7334131-3 (Version None)
Quarter: 2011Q1

REPORT INFORMATION
  Report Type: 
  Country: None (occurrence: None)
  Receive Date: 20110302
  Receipt Date: 20110302
  Transmission Date: 20110831
  Serious: Yes (Other)
  Sender: FDA-Public Use
  Company Number: None

PATIENT
  Age: 45 Year
  Sex: Female
  Weight: 52.6173 kg

DRUGS (1)
  1. EFFEXOR [Suspect]
     Indication: DEPRESSION
     Dosage: 75 MG 1X/DAY PO
     Route: 048
     Dates: start: 20110225, end: 20110228

REACTIONS (5)
  - CHEST DISCOMFORT [None]
  - SYNCOPE [None]
  - NUCHAL RIGIDITY [None]
  - DYSPNOEA [None]
  - TREMOR [None]
